FAERS Safety Report 20308048 (Version 3)
Quarter: 2022Q2

REPORT INFORMATION
  Report Type: Spontaneous
  Country: US (occurrence: US)
  Receive Date: 20220107
  Receipt Date: 20220406
  Transmission Date: 20220721
  Serious: No
  Sender: FDA-Public Use
  Company Number: US-ALLERGAN-2142334US

PATIENT
  Age: 47 Year
  Sex: Female
  Weight: 68.027 kg

DRUGS (17)
  1. QULIPTA [Suspect]
     Active Substance: ATOGEPANT
     Indication: Migraine
     Dosage: 30 MG, QD
     Route: 048
     Dates: start: 202201
  2. QULIPTA [Suspect]
     Active Substance: ATOGEPANT
     Dosage: 15 MG, QD
     Route: 048
     Dates: start: 20211229, end: 202201
  3. QULIPTA [Suspect]
     Active Substance: ATOGEPANT
     Dosage: 30 MG, QD
     Route: 048
     Dates: start: 20211225, end: 20211229
  4. QULIPTA [Suspect]
     Active Substance: ATOGEPANT
     Dosage: 60 MG, QD
     Route: 048
     Dates: start: 202111, end: 20211225
  5. VALTREX [Concomitant]
     Active Substance: VALACYCLOVIR HYDROCHLORIDE
     Indication: Oral herpes
     Dosage: UNK, PRN
  6. IBUPROFEN [Concomitant]
     Active Substance: IBUPROFEN
     Indication: Back pain
  7. VITAMINS [Concomitant]
     Active Substance: VITAMINS
  8. TYLENOL [Concomitant]
     Active Substance: ACETAMINOPHEN
     Indication: Back pain
  9. COENZYME Q10 [Concomitant]
     Active Substance: DIETARY SUPPLEMENT\UBIDECARENONE
  10. BLACK COHOSH [Concomitant]
     Active Substance: BLACK COHOSH
     Indication: Menopause
  11. BLACK CURRANT OIL [RIBES NIGRUM SEED OIL] [Concomitant]
     Indication: Menopause
  12. HESPERIDIN [Concomitant]
     Active Substance: HESPERIDIN
     Indication: Menopause
  13. RIBOFLAVIN [Concomitant]
     Active Substance: RIBOFLAVIN
  14. ZINC [Concomitant]
     Active Substance: ZINC
  15. VITAMIN D3 [Concomitant]
     Active Substance: CHOLECALCIFEROL
  16. SUPER EPA [Concomitant]
  17. LINOLELAIDIC ACID [Concomitant]

REACTIONS (3)
  - Wrong technique in product usage process [Unknown]
  - Constipation [Recovered/Resolved]
  - Therapeutic response decreased [Unknown]

NARRATIVE: CASE EVENT DATE: 20211225
